FAERS Safety Report 11068289 (Version 1)
Quarter: 2015Q2

REPORT INFORMATION
  Report Type: Spontaneous
  Country: US (occurrence: US)
  Receive Date: 20150427
  Receipt Date: 20150427
  Transmission Date: 20150821
  Serious: No
  Sender: FDA-Public Use
  Company Number: US-ASTRAZENECA-2014SE28601

PATIENT
  Age: 3 Month
  Sex: Female
  Weight: 6.4 kg

DRUGS (3)
  1. PULMICORT TURBUHALER [Suspect]
     Active Substance: BUDESONIDE
     Indication: ASTHMA
     Dosage: BID
     Route: 055
     Dates: start: 201404
  2. NEXIUM [Suspect]
     Active Substance: ESOMEPRAZOLE MAGNESIUM
     Indication: GASTROOESOPHAGEAL REFLUX DISEASE
     Dosage: 2.5MG
     Route: 048
     Dates: start: 20140401
  3. CETIRIZINE SOLN [Concomitant]
     Indication: RHINITIS ALLERGIC
     Dates: start: 20140411

REACTIONS (3)
  - Intentional product misuse [Unknown]
  - Asthma [Unknown]
  - Seasonal allergy [Unknown]

NARRATIVE: CASE EVENT DATE: 201404
